FAERS Safety Report 4442223-1 (Version None)
Quarter: 2004Q3

REPORT INFORMATION
  Report Type: 
  Country: None (occurrence: None)
  Receive Date: 20040903
  Receipt Date: 20040719
  Transmission Date: 20050211
  Serious: Yes (Other)
  Sender: FDA-Public Use
  Company Number: 2004UW14970

PATIENT
  Age: 74 Year
  Sex: Female
  Weight: 67.1324 kg

DRUGS (5)
  1. CRESTOR [Suspect]
     Indication: BLOOD CHOLESTEROL INCREASED
     Dates: start: 20031001
  2. ZOCOR [Concomitant]
  3. ZETIA [Concomitant]
  4. NIASPAN [Concomitant]
  5. NERVOUSNESS [Concomitant]

REACTIONS (9)
  - ARTHRALGIA [None]
  - DIFFICULTY IN WALKING [None]
  - FEELING ABNORMAL [None]
  - MUSCULAR WEAKNESS [None]
  - MUSCULOSKELETAL DISCOMFORT [None]
  - MYALGIA [None]
  - NERVOUSNESS [None]
  - PAIN IN EXTREMITY [None]
  - RASH PRURITIC [None]
